FAERS Safety Report 5972659-9 (Version None)
Quarter: 2008Q4

REPORT INFORMATION
  Report Type: 
  Country: None (occurrence: None)
  Receive Date: 20081201
  Receipt Date: 20081121
  Transmission Date: 20090506
  Serious: Yes (Death, Life-Threatening)
  Sender: FDA-Public Use
  Company Number: JP-NOVOPROD-281133

PATIENT
  Age: 85 Year
  Sex: Male
  Weight: 45 kg

DRUGS (2)
  1. NOVOSEVEN [Suspect]
     Indication: GASTROINTESTINAL ENDOSCOPIC THERAPY
     Dosage: TOTAL 3.6 MG
     Route: 042
     Dates: start: 20081021, end: 20081022
  2. NOVOSEVEN [Suspect]
     Indication: FACTOR VII DEFICIENCY

REACTIONS (1)
  - CARDIO-RESPIRATORY ARREST [None]
